FAERS Safety Report 8006369-3 (Version None)
Quarter: 2011Q4

REPORT INFORMATION
  Report Type: 
  Country: None (occurrence: None)
  Receive Date: 20111226
  Receipt Date: 20111216
  Transmission Date: 20120403
  Serious: Yes (Other)
  Sender: FDA-Public Use
  Company Number: PHHY2011NO100797

PATIENT
  Age: 53 Year
  Sex: Male

DRUGS (4)
  1. ZYRTEC [Suspect]
     Dosage: 1 TABLET
     Route: 048
  2. VOLTAREN [Suspect]
     Indication: INFLAMMATION
     Dosage: 50 MG, UNK
     Route: 048
  3. VOLTAREN [Suspect]
     Dosage: 50 MG, 1 TABLET
     Route: 048
  4. PINEX FORTE [Suspect]
     Dosage: 1 TABLET (30 MG CODEINE PHOSPHATE AND 500 MG PARACETAMOL)
     Route: 048

REACTIONS (11)
  - HYPERSENSITIVITY [None]
  - CHEST DISCOMFORT [None]
  - FEELING ABNORMAL [None]
  - DIARRHOEA [None]
  - DYSPNOEA [None]
  - HEADACHE [None]
  - DYSPEPSIA [None]
  - URTICARIA [None]
  - SWELLING [None]
  - PRURITUS GENERALISED [None]
  - RASH [None]
